FAERS Safety Report 14306382 (Version 1)
Quarter: 2017Q4

REPORT INFORMATION
  Report Type: Spontaneous
  Country: IN (occurrence: IN)
  Receive Date: 20171220
  Receipt Date: 20171220
  Transmission Date: 20180321
  Serious: Yes (Hospitalization, Disabling, Other)
  Sender: FDA-Public Use
  Company Number: IN-VISTAPHARM, INC.-VER201712-001494

PATIENT
  Age: 65 Year
  Sex: Female
  Weight: 43 kg

DRUGS (2)
  1. PHENYTOIN. [Suspect]
     Active Substance: PHENYTOIN
     Indication: GENERALISED TONIC-CLONIC SEIZURE
     Dosage: 600 MG DISSOLVED IN 100 ML NORMAL SALINE (NS) OVER 20 MIN
     Route: 042
  2. PHENYTOIN. [Suspect]
     Active Substance: PHENYTOIN
     Route: 042

REACTIONS (2)
  - Gangrene [Not Recovered/Not Resolved]
  - Purple glove syndrome [Not Recovered/Not Resolved]
